FAERS Safety Report 12356454 (Version 1)
Quarter: 2016Q2

REPORT INFORMATION
  Report Type: Spontaneous
  Country: US (occurrence: US)
  Receive Date: 20160511
  Receipt Date: 20160511
  Transmission Date: 20160815
  Serious: Yes (Other)
  Sender: FDA-Public Use
  Company Number: US-PFIZER INC-2016243080

PATIENT
  Age: 72 Year
  Sex: Male
  Weight: 110.66 kg

DRUGS (2)
  1. TIKOSYN [Suspect]
     Active Substance: DOFETILIDE
     Dosage: 3 CAPSULES OF 125 MCG (375 MCG) TWICE A DAY
  2. TIKOSYN [Suspect]
     Active Substance: DOFETILIDE
     Indication: ATRIAL FIBRILLATION
     Dosage: 500 UG, 2X/DAY

REACTIONS (2)
  - Renal cancer [Unknown]
  - Drug ineffective [Unknown]
